FAERS Safety Report 10958605 (Version 1)
Quarter: 2015Q1

REPORT INFORMATION
  Report Type: Report from Study
  Country: CA (occurrence: CA)
  Receive Date: 20150326
  Receipt Date: 20150326
  Transmission Date: 20150721
  Serious: Yes (Other)
  Sender: FDA-Public Use
  Company Number: PHHY2013CA032786

PATIENT
  Age: 64 Year
  Sex: Female

DRUGS (4)
  1. HYALURONIC ACID [Concomitant]
     Active Substance: HYALURONIC ACID
     Indication: PRODUCT USED FOR UNKNOWN INDICATION
     Route: 065
  2. GLEEVEC [Suspect]
     Active Substance: IMATINIB MESYLATE
     Indication: CHRONIC MYELOID LEUKAEMIA
     Dosage: 400 MG, QD
     Route: 048
     Dates: start: 201006
  3. LORAZEPAM. [Concomitant]
     Active Substance: LORAZEPAM
     Indication: PRODUCT USED FOR UNKNOWN INDICATION
     Route: 065
  4. HYDROCHLOROTHIAZIDE. [Concomitant]
     Active Substance: HYDROCHLOROTHIAZIDE
     Indication: BLOOD PRESSURE
     Route: 065

REACTIONS (22)
  - Dizziness [Unknown]
  - Migraine [Unknown]
  - Rash [Recovered/Resolved]
  - Eye haemorrhage [Unknown]
  - Arthralgia [Unknown]
  - Paranasal sinus discomfort [Unknown]
  - Gallbladder pain [Recovered/Resolved]
  - Nausea [Unknown]
  - Pallor [Recovered/Resolved]
  - Gait disturbance [Unknown]
  - Pigmentation disorder [Recovered/Resolved]
  - Neuralgia [Unknown]
  - Urticaria [Recovered/Resolved]
  - Gallbladder polyp [Unknown]
  - Eye swelling [Unknown]
  - Head discomfort [Unknown]
  - Swelling face [Recovered/Resolved]
  - Joint swelling [Recovered/Resolved]
  - Weight decreased [Unknown]
  - Eye swelling [Recovered/Resolved]
  - Muscle strain [Unknown]
  - Tremor [Unknown]

NARRATIVE: CASE EVENT DATE: 201212
